FAERS Safety Report 4656772-4 (Version None)
Quarter: 2005Q2

REPORT INFORMATION
  Report Type: 
  Country: None (occurrence: None)
  Receive Date: 20050506
  Receipt Date: 20050408
  Transmission Date: 20051028
  Serious: Yes (Hospitalization)
  Sender: FDA-Public Use
  Company Number: 2005AP02184

PATIENT
  Age: 14 Year
  Sex: Male

DRUGS (4)
  1. SEROQUEL [Suspect]
     Indication: SCHIZOPHRENIA
     Dosage: 50 MG DAILY PO
     Route: 048
     Dates: start: 20050407
  2. CHLORPROMAZINE [Concomitant]
  3. PARACETAMOL [Concomitant]
  4. AKINETON [Concomitant]

REACTIONS (2)
  - AGGRESSION [None]
  - IRRITABILITY [None]
